FAERS Safety Report 6546724-1 (Version None)
Quarter: 2010Q1

REPORT INFORMATION
  Report Type: 
  Country: None (occurrence: None)
  Receive Date: 20100122
  Receipt Date: 20100112
  Transmission Date: 20100710
  Serious: Yes (Hospitalization, Other)
  Sender: FDA-Public Use
  Company Number: JP-ELI_LILLY_AND_COMPANY-JP200912005554

PATIENT
  Age: 65 Year
  Sex: Male

DRUGS (4)
  1. ALIMTA [Suspect]
     Indication: NON-SMALL CELL LUNG CANCER
     Dosage: 700 MG, OTHER
     Route: 042
     Dates: start: 20091124, end: 20091218
  2. CARBOPLATIN [Concomitant]
     Indication: NON-SMALL CELL LUNG CANCER
     Dosage: {5 AUC, 500ML
     Route: 042
     Dates: start: 20091124, end: 20091218
  3. METHYCOBAL [Concomitant]
     Route: 030
     Dates: start: 20091117
  4. FOLIAMIN [Concomitant]
     Route: 048
     Dates: start: 20091117, end: 20091215

REACTIONS (2)
  - ANAPHYLACTIC SHOCK [None]
  - ERYTHEMA [None]
